FAERS Safety Report 23486037 (Version 2)
Quarter: 2024Q1

REPORT INFORMATION
  Report Type: Spontaneous
  Country: DE (occurrence: DE)
  Receive Date: 20240206
  Receipt Date: 20240215
  Transmission Date: 20240409
  Serious: Yes (Death)
  Sender: FDA-Public Use
  Company Number: DE-002147023-NVSC2024DE002177

PATIENT
  Age: 0 Year
  Sex: Female
  Weight: 81 kg

DRUGS (9)
  1. AFINITOR [Suspect]
     Active Substance: EVEROLIMUS
     Dosage: 10 MG, QD (DAILY DOSE)
     Route: 048
     Dates: start: 20210324, end: 20210609
  2. AFINITOR [Suspect]
     Active Substance: EVEROLIMUS
     Dosage: 10 MG, QD (DAILY DOSE)
     Route: 048
     Dates: start: 20210610, end: 20210825
  3. AFINITOR [Suspect]
     Active Substance: EVEROLIMUS
     Indication: Hormone receptor positive HER2 negative breast cancer
     Dosage: 5 MG, QD (DAILY DOSE)
     Route: 048
     Dates: start: 20201103, end: 20201209
  4. AFINITOR [Suspect]
     Active Substance: EVEROLIMUS
     Dosage: 5 MG, QD (DAILY DOSE)
     Route: 048
     Dates: start: 20201209, end: 20210323
  5. FULVESTRANT [Suspect]
     Active Substance: FULVESTRANT
     Indication: Hormone receptor positive HER2 negative breast cancer
     Dosage: 500 MG (DAILY DOSE)
     Route: 030
     Dates: start: 20190909, end: 20200203
  6. FULVESTRANT [Suspect]
     Active Substance: FULVESTRANT
     Dosage: 500 MG (DAILY DOSE)
     Route: 030
     Dates: start: 20200224, end: 20201007
  7. RIBOCICLIB [Suspect]
     Active Substance: RIBOCICLIB
     Dosage: 600 MG (DAILY DOSE) SCHEMA 21 DAYS INTAKE, 7 DAYS PAUSE
     Route: 048
     Dates: start: 20200204, end: 20201103
  8. RIBOCICLIB [Suspect]
     Active Substance: RIBOCICLIB
     Indication: Hormone receptor positive HER2 negative breast cancer
     Dosage: 600 MG (DAILY DOSE) SCHEMD
     Route: 048
     Dates: start: 20190910, end: 20200203
  9. ABEMACICLIB [Concomitant]
     Active Substance: ABEMACICLIB
     Indication: HER2 positive breast cancer
     Dosage: 300 MG, QD (DAILY DOSE)
     Route: 048
     Dates: start: 20210907, end: 20211115

REACTIONS (2)
  - Hormone receptor positive HER2 negative breast cancer [Fatal]
  - Malignant neoplasm progression [Fatal]

NARRATIVE: CASE EVENT DATE: 20230102
